FAERS Safety Report 15666747 (Version 1)
Quarter: 2018Q4

REPORT INFORMATION
  Report Type: Spontaneous
  Country: US (occurrence: US)
  Receive Date: 20181128
  Receipt Date: 20181128
  Transmission Date: 20190205
  Serious: No
  Sender: FDA-Public Use
  Company Number: US-ROCHE-2124038

PATIENT
  Age: 76 Year
  Sex: Female

DRUGS (15)
  1. OCREVUS [Suspect]
     Active Substance: OCRELIZUMAB
     Route: 065
     Dates: start: 20171219
  2. PROTONIX [Concomitant]
     Active Substance: PANTOPRAZOLE SODIUM
  3. TRILEPTAL [Concomitant]
     Active Substance: OXCARBAZEPINE
  4. PHENERGAN [Concomitant]
     Active Substance: PROMETHAZINE HYDROCHLORIDE
  5. OCREVUS [Suspect]
     Active Substance: OCRELIZUMAB
     Route: 065
     Dates: start: 20171215
  6. GABAPENTIN. [Concomitant]
     Active Substance: GABAPENTIN
  7. ZONEGRAN [Concomitant]
     Active Substance: ZONISAMIDE
  8. TRAMADOL. [Concomitant]
     Active Substance: TRAMADOL
  9. MYRBETRIQ [Concomitant]
     Active Substance: MIRABEGRON
  10. URSODIOL. [Concomitant]
     Active Substance: URSODIOL
  11. FLONASE [Concomitant]
     Active Substance: FLUTICASONE PROPIONATE
  12. ESTRADIOL. [Concomitant]
     Active Substance: ESTRADIOL
  13. OCREVUS [Suspect]
     Active Substance: OCRELIZUMAB
     Indication: PRODUCT USED FOR UNKNOWN INDICATION
     Route: 065
     Dates: start: 20171205
  14. FLEXERIL [Concomitant]
     Active Substance: CYCLOBENZAPRINE HYDROCHLORIDE
  15. METOPROLOL. [Concomitant]
     Active Substance: METOPROLOL

REACTIONS (3)
  - Hepatic enzyme increased [Unknown]
  - Productive cough [Unknown]
  - Cough [Recovered/Resolved]

NARRATIVE: CASE EVENT DATE: 20171206
